FAERS Safety Report 7650730-3 (Version None)
Quarter: 2011Q3

REPORT INFORMATION
  Report Type: 
  Country: None (occurrence: None)
  Receive Date: 20110802
  Receipt Date: 20110719
  Transmission Date: 20111222
  Serious: Yes (Disabling)
  Sender: FDA-Public Use
  Company Number: DE-GENENTECH-321254

PATIENT
  Sex: Female
  Weight: 75.5 kg

DRUGS (7)
  1. OMEPRAZOLE [Concomitant]
     Indication: GASTRITIS
     Dosage: 40 MG, QD
  2. RITUXIMAB [Suspect]
     Indication: RHEUMATOID ARTHRITIS
     Dosage: 1000 MG, X2
     Route: 042
     Dates: start: 20081101, end: 20090701
  3. ASPIRIN [Concomitant]
     Indication: HAEMODILUTION
     Dosage: 100 MG, QD
  4. METHOTREXATE [Suspect]
     Indication: RHEUMATOID ARTHRITIS
     Dosage: 15 MG, 1/WEEK
     Route: 058
     Dates: start: 20090701
  5. LISINOPRIL [Concomitant]
     Indication: HYPERTENSION
     Dosage: 5 MG, QD
  6. CALCIUM CARBONATE/CHOLECALCIFEROL [Concomitant]
     Indication: RHEUMATOID ARTHRITIS
     Dosage: 1500 MG, QD
     Dates: start: 20090701
  7. PREDNISOLONE [Concomitant]
     Indication: RHEUMATOID ARTHRITIS
     Dosage: 5 MG, QD

REACTIONS (1)
  - NEUROENDOCRINE CARCINOMA OF THE SKIN [None]
